FAERS Safety Report 18600293 (Version 1)
Quarter: 2020Q4

REPORT INFORMATION
  Report Type: Spontaneous
  Country: US (occurrence: US)
  Receive Date: 20201210
  Receipt Date: 20201210
  Transmission Date: 20210114
  Serious: Yes (Disabling)
  Sender: FDA-Public Use
  Company Number: None

PATIENT
  Age: 75 Year
  Sex: Female
  Weight: 67.5 kg

DRUGS (1)
  1. HYDROCODONE [Suspect]
     Active Substance: HYDROCODONE
     Indication: BACK PAIN
     Dosage: ?          OTHER FREQUENCY:EVERY 4-6 HOURS PR;?
     Route: 048
     Dates: start: 20131003, end: 20180405

REACTIONS (7)
  - Aggression [None]
  - Inadequate analgesia [None]
  - Gait inability [None]
  - Dementia [None]
  - Drug ineffective [None]
  - Parkinson^s disease [None]
  - Abnormal behaviour [None]

NARRATIVE: CASE EVENT DATE: 20131003
